FAERS Safety Report 10958631 (Version 3)
Quarter: 2015Q2

REPORT INFORMATION
  Report Type: Spontaneous
  Country: TR (occurrence: TR)
  Receive Date: 20150326
  Receipt Date: 20150413
  Transmission Date: 20150821
  Serious: Yes (Hospitalization, Other)
  Sender: FDA-Public Use
  Company Number: TR-ALLERGAN-1504913US

PATIENT
  Age: 69 Year
  Sex: Male
  Weight: 80 kg

DRUGS (2)
  1. OZURDEX [Suspect]
     Active Substance: DEXAMETHASONE
     Indication: RETINAL VEIN OCCLUSION
     Dosage: 0.7 MG, SINGLE
     Route: 031
     Dates: start: 20150223, end: 20150223
  2. VIGAMOX [Concomitant]
     Active Substance: MOXIFLOXACIN HYDROCHLORIDE
     Indication: PRODUCT USED FOR UNKNOWN INDICATION
     Dosage: 1 GTT, 5 TIMES DAILY

REACTIONS (4)
  - Iris adhesions [Recovering/Resolving]
  - Vision blurred [Not Recovered/Not Resolved]
  - Endophthalmitis [Recovering/Resolving]
  - Lenticular opacities [Recovering/Resolving]

NARRATIVE: CASE EVENT DATE: 20150302
